FAERS Safety Report 20305113 (Version 1)
Quarter: 2022Q1

REPORT INFORMATION
  Report Type: Report from Study
  Country: GT (occurrence: GT)
  Receive Date: 20220106
  Receipt Date: 20220106
  Transmission Date: 20220423
  Serious: Yes (Other)
  Sender: FDA-Public Use
  Company Number: GT-NOVARTISPH-NVSC2022GT001669

PATIENT
  Age: 69 Year
  Sex: Female

DRUGS (1)
  1. EXFORGE HCT [Suspect]
     Active Substance: AMLODIPINE BESYLATE\HYDROCHLOROTHIAZIDE\VALSARTAN
     Indication: Product used for unknown indication
     Dosage: UNK (10/320/25 MG, STARTED APPROXIMATELY 2 YEAR AGO AND STOPPED 6 MONTHS AGO)
     Route: 065

REACTIONS (5)
  - Cardiac failure [Unknown]
  - Peripheral swelling [Unknown]
  - Cardiac disorder [Unknown]
  - Hypertension [Unknown]
  - Therapeutic product effect decreased [Unknown]
